FAERS Safety Report 23521534 (Version 1)
Quarter: 2024Q1

REPORT INFORMATION
  Report Type: Report from Study
  Country: EG (occurrence: EG)
  Receive Date: 20240214
  Receipt Date: 20240214
  Transmission Date: 20240410
  Serious: Yes (Other)
  Sender: FDA-Public Use
  Company Number: EG-Merck Healthcare KGaA-2024007613

PATIENT
  Age: 37 Year
  Sex: Female

DRUGS (1)
  1. MAVENCLAD [Suspect]
     Active Substance: CLADRIBINE
     Indication: Multiple sclerosis
     Dosage: THERAPY
     Route: 048
     Dates: start: 20200507

REACTIONS (2)
  - Abortion [Recovered/Resolved]
  - Maternal exposure before pregnancy [Recovered/Resolved]
